FAERS Safety Report 11914509 (Version 1)
Quarter: 2016Q1

REPORT INFORMATION
  Report Type: Spontaneous
  Country: FR (occurrence: FR)
  Receive Date: 20160113
  Receipt Date: 20160113
  Transmission Date: 20160526
  Serious: Yes (Hospitalization, Other)
  Sender: FDA-Public Use
  Company Number: FR-MEDTRONIC-1046461

PATIENT
  Age: 40 Year
  Sex: Female

DRUGS (1)
  1. BACLOFEN UNKNOWN [Suspect]
     Active Substance: BACLOFEN

REACTIONS (4)
  - Coma [Recovered/Resolved]
  - Ammonia abnormal [None]
  - Toxicity to various agents [None]
  - Mydriasis [Recovered/Resolved]

NARRATIVE: CASE EVENT DATE: 20150614
